FAERS Safety Report 4880016-1 (Version None)
Quarter: 2006Q1

REPORT INFORMATION
  Report Type: 
  Country: None (occurrence: None)
  Receive Date: 20060111
  Receipt Date: 20060105
  Transmission Date: 20060701
  Serious: Yes (Other)
  Sender: FDA-Public Use
  Company Number: US-2006-000224

PATIENT
  Sex: Female

DRUGS (6)
  1. CLIMARA [Suspect]
     Indication: MENOPAUSAL SYMPTOMS
     Dosage: MG/D, CONT, TRANSDERMAL
     Route: 062
  2. PREMPRO [Suspect]
     Indication: MENOPAUSAL SYMPTOMS
  3. PROVERA [Suspect]
     Indication: MENOPAUSAL SYMPTOMS
  4. ORTHO-PREFEST (NORGESTIMATE, ESTRADIOL) [Suspect]
     Indication: MENOPAUSAL SYMPTOMS
  5. ACTIVELLA [Suspect]
     Indication: MENOPAUSAL SYMPTOMS
  6. MEDROXYPROGESTERONE [Suspect]
     Indication: MENOPAUSAL SYMPTOMS

REACTIONS (5)
  - ANHEDONIA [None]
  - ANXIETY [None]
  - BREAST CANCER FEMALE [None]
  - INJURY [None]
  - PAIN [None]
